FAERS Safety Report 10185479 (Version 1)
Quarter: 2014Q2

REPORT INFORMATION
  Report Type: Spontaneous
  Country: US (occurrence: None)
  Receive Date: 20140520
  Receipt Date: 20140520
  Transmission Date: 20141212
  Serious: Yes (Hospitalization)
  Sender: FDA-Public Use
  Company Number: None

PATIENT
  Age: 44 Year
  Sex: Female

DRUGS (4)
  1. DESFLURANE [Suspect]
     Indication: SURGERY
     Route: 055
     Dates: start: 20120913
  2. CLINDAMYCIN [Concomitant]
  3. HEPARIN [Concomitant]
  4. HYDROMORPHONE [Concomitant]

REACTIONS (5)
  - Respiratory disorder [None]
  - Abdominal rigidity [None]
  - End-tidal CO2 increased [None]
  - Body temperature increased [None]
  - Acidosis [None]
